FAERS Safety Report 25957531 (Version 1)
Quarter: 2025Q4

REPORT INFORMATION
  Report Type: Report from Study
  Country: EG (occurrence: EG)
  Receive Date: 20251024
  Receipt Date: 20251024
  Transmission Date: 20260117
  Serious: Yes (Hospitalization, Other)
  Sender: NOVARTIS
  Company Number: EG-002147023-NVSC2025EG073581

PATIENT
  Age: 31 Year
  Sex: Male
  Weight: 68 kg

DRUGS (15)
  1. MAYZENT [Suspect]
     Active Substance: SIPONIMOD
     Indication: Multiple sclerosis
     Dosage: 2 MG, QD, 1 TABLET ONCE DAILY (STOPPED AFTER 7 DAYS OF THE START DATE)
     Route: 048
     Dates: start: 20240819
  2. MAYZENT [Suspect]
     Active Substance: SIPONIMOD
     Dosage: 2 MG, QD, ONE TABLET PER DAY
     Route: 048
     Dates: start: 202412
  3. MAYZENT [Suspect]
     Active Substance: SIPONIMOD
     Dosage: 2 MG, QD, ONE TABLET ONCE DAILY
     Route: 048
     Dates: start: 20241208, end: 20250208
  4. MAYZENT [Suspect]
     Active Substance: SIPONIMOD
     Dosage: 2 MG, QD, ONE TABLET PER DAY
     Route: 048
     Dates: end: 20250729
  5. MAYZENT [Suspect]
     Active Substance: SIPONIMOD
     Dosage: 2 MG, QD, ONE TABLET ONCE DAILY
     Route: 048
     Dates: start: 20251006
  6. GILENYA [Suspect]
     Active Substance: FINGOLIMOD HYDROCHLORIDE
     Indication: Multiple sclerosis
     Dosage: 0.5 MG, QD, ONE CAPSULE ONCE DAILY (STOPPED 9 MONTHS AFTER THE START DATE)
     Route: 048
     Dates: start: 2016
  7. GILENYA [Suspect]
     Active Substance: FINGOLIMOD HYDROCHLORIDE
     Dosage: 0.5 MG, QD, ONE CAPSULE ONCE DAILY (STOPPED AFTER 6 MONTHS FROM START DATE)
     Route: 048
     Dates: start: 2019
  8. GILENYA [Suspect]
     Active Substance: FINGOLIMOD HYDROCHLORIDE
     Dosage: 0.5 MG, QOD, EVERY OTHER DAY
     Route: 048
     Dates: start: 201902, end: 201904
  9. GILENYA [Suspect]
     Active Substance: FINGOLIMOD HYDROCHLORIDE
     Dosage: 0.5 MG, QOD, EVERY OTHER DAY
     Route: 048
     Dates: start: 20250531
  10. TORSEMIDE [Concomitant]
     Active Substance: TORSEMIDE
     Indication: Diuretic therapy
     Dosage: 10 DAYS AGO, 5 MG, QD, TABLET, ? TABLET ONCE DAILY
     Route: 048
     Dates: start: 20250420
  11. CEREBROLYSIN [Concomitant]
     Active Substance: CEREBROLYSIN
     Indication: Blood disorder
     Dosage: QD, SOLUTION FOR INFUSION (STOPPED AFTER 6 DAYS FROM START)
     Route: 042
     Dates: start: 201802
  12. CEREBROLYSIN [Concomitant]
     Active Substance: CEREBROLYSIN
     Dosage: QD, SOLUTION FOR INFUSION (STOPPED AFTER 5 DAYS FROM START DATE)
     Route: 042
     Dates: start: 20230927
  13. SOLU-MEDROL [Concomitant]
     Active Substance: METHYLPREDNISOLONE SODIUM SUCCINATE
     Indication: Blood disorder
     Dosage: QD, SOLUTION FOR INFUSION (STOPPED 6 DAYS AFTER START)
     Route: 042
     Dates: start: 201802
  14. RINGERS SOLUTION [Concomitant]
     Active Substance: CALCIUM CHLORIDE\POTASSIUM CHLORIDE\SODIUM CHLORIDE
     Indication: Blood disorder
     Dosage: QD, SOLUTION FOR INFUSION (STOPPED 6 DAYS AFTER START)
     Route: 042
     Dates: start: 201802
  15. RINGERS SOLUTION [Concomitant]
     Active Substance: CALCIUM CHLORIDE\POTASSIUM CHLORIDE\SODIUM CHLORIDE
     Dosage: QD, SOLUTION FOR INFUSION (STOPPED 5 DAYS FROM START)
     Route: 042
     Dates: start: 20230927

REACTIONS (37)
  - Pain in extremity [Not Recovered/Not Resolved]
  - Drug ineffective [Not Recovered/Not Resolved]
  - Pollakiuria [Recovered/Resolved]
  - Dehydration [Recovered/Resolved]
  - Limb discomfort [Not Recovered/Not Resolved]
  - Palpitations [Not Recovered/Not Resolved]
  - Musculoskeletal stiffness [Recovered/Resolved]
  - Hypoaesthesia [Not Recovered/Not Resolved]
  - Multiple sclerosis relapse [Unknown]
  - Oedema peripheral [Not Recovered/Not Resolved]
  - Urinary retention [Recovered/Resolved]
  - Heart rate irregular [Recovered/Resolved]
  - Abdominal discomfort [Recovered/Resolved]
  - White blood cell count decreased [Not Recovered/Not Resolved]
  - Blood creatinine decreased [Not Recovered/Not Resolved]
  - Eye infection [Recovered/Resolved]
  - Gait disturbance [Not Recovered/Not Resolved]
  - Dehydration [Unknown]
  - Hypotension [Recovered/Resolved]
  - Bacterial infection [Unknown]
  - Pollakiuria [Unknown]
  - Skin discolouration [Recovering/Resolving]
  - Inflammation [Recovering/Resolving]
  - Erythema [Recovering/Resolving]
  - Dyspnoea [Unknown]
  - Off label use [Recovered/Resolved]
  - Off label use [Unknown]
  - Arthralgia [Unknown]
  - Pruritus [Not Recovered/Not Resolved]
  - Anaemia [Unknown]
  - Dysphonia [Unknown]
  - Abscess limb [Recovered/Resolved]
  - Abscess oral [Recovered/Resolved]
  - Product use issue [Unknown]
  - Bacterial infection [Unknown]
  - Dyspnoea [Unknown]
  - Scoliosis [Unknown]

NARRATIVE: CASE EVENT DATE: 20180401
